FAERS Safety Report 8404277-7 (Version None)
Quarter: 2012Q2

REPORT INFORMATION
  Report Type: 
  Country: None (occurrence: None)
  Receive Date: 20120601
  Receipt Date: 20120524
  Transmission Date: 20120825
  Serious: Yes (Hospitalization, Other)
  Sender: FDA-Public Use
  Company Number: US-MILLENNIUM PHARMACEUTICALS, INC.-2012-01911

PATIENT
  Sex: Male
  Weight: 73 kg

DRUGS (3)
  1. MELPHALAN HYDROCHLORIDE [Suspect]
     Indication: MULTIPLE MYELOMA
     Dosage: 12 MG, CYCLIC
     Route: 048
     Dates: start: 20110418
  2. VELCADE [Suspect]
     Indication: MULTIPLE MYELOMA
     Dosage: 1.3 MG/M2, 1/WEEK
     Route: 042
     Dates: start: 20110418, end: 20120216
  3. PREDNISONE TAB [Suspect]
     Indication: MULTIPLE MYELOMA
     Dosage: 100 MG, CYCLIC
     Route: 048
     Dates: start: 20110418

REACTIONS (5)
  - PANCYTOPENIA [None]
  - BILE DUCT OBSTRUCTION [None]
  - ABDOMINAL PAIN UPPER [None]
  - PNEUMONIA [None]
  - FLUID OVERLOAD [None]
